FAERS Safety Report 20667313 (Version 1)
Quarter: 2022Q2

REPORT INFORMATION
  Report Type: Spontaneous
  Country: US (occurrence: US)
  Receive Date: 20220404
  Receipt Date: 20220404
  Transmission Date: 20220720
  Serious: No
  Sender: FDA-Public Use
  Company Number: US-AMGEN-USASP2022043112

PATIENT
  Age: 29 Year
  Sex: Female

DRUGS (3)
  1. AIMOVIG [Suspect]
     Active Substance: ERENUMAB-AOOE
     Indication: Migraine
     Dosage: 140 MILLIGRAM, QMO
     Route: 058
     Dates: start: 20220131, end: 20220301
  2. NURTEC ODT [Concomitant]
     Active Substance: RIMEGEPANT SULFATE
     Indication: Migraine
     Dosage: 75 MILLIGRAM, AS NECESSARY
     Route: 048
     Dates: start: 20211207, end: 20220301
  3. CAMBIA [Concomitant]
     Active Substance: DICLOFENAC POTASSIUM
     Indication: Migraine
     Dosage: 50 MILLIGRAM, AS NECESSARY
     Route: 048
     Dates: start: 20211207, end: 20220301

REACTIONS (1)
  - Maternal exposure during pregnancy [Unknown]

NARRATIVE: CASE EVENT DATE: 20220201
